FAERS Safety Report 6179832-8 (Version None)
Quarter: 2009Q2

REPORT INFORMATION
  Report Type: 
  Country: None (occurrence: None)
  Receive Date: 20090505
  Receipt Date: 20090423
  Transmission Date: 20091009
  Serious: Yes (Other)
  Sender: FDA-Public Use
  Company Number: GB-JNJCH-2009010432

PATIENT
  Sex: Female

DRUGS (4)
  1. NICORETTE [Suspect]
     Indication: SMOKING CESSATION THERAPY
     Route: 062
  2. SALAZOPYRIN [Concomitant]
     Indication: COLITIS ULCERATIVE
     Dosage: TEXT:^500 MG 6 TABS^
     Route: 065
  3. CORTICOSTEROIDS [Concomitant]
     Indication: ANKYLOSING SPONDYLITIS
     Dosage: TEXT:UNSPECIFIED
     Route: 065
  4. PARACETAMOL [Concomitant]
     Indication: PAIN
     Dosage: TEXT:UNSPECIFIED
     Route: 065

REACTIONS (6)
  - APPLICATION SITE DISCOLOURATION [None]
  - APPLICATION SITE ERYTHEMA [None]
  - APPLICATION SITE INFLAMMATION [None]
  - APPLICATION SITE PAIN [None]
  - APPLICATION SITE PRURITUS [None]
  - APPLICATION SITE VESICLES [None]
